FAERS Safety Report 7362492-8 (Version None)
Quarter: 2011Q1

REPORT INFORMATION
  Report Type: 
  Country: None (occurrence: None)
  Receive Date: 20110318
  Receipt Date: 20101123
  Transmission Date: 20110831
  Serious: Yes (Other)
  Sender: FDA-Public Use
  Company Number: IE-ASTRAZENECA-2010SE47342

PATIENT
  Age: 51 Year
  Sex: Male
  Weight: 110 kg

DRUGS (3)
  1. ALLOPURINOL [Concomitant]
  2. ATACAND [Suspect]
     Indication: HYPERTENSION
     Route: 048
     Dates: start: 20081211, end: 20081215
  3. ESOMEPRAZOLE MAGNESIUM [Concomitant]

REACTIONS (3)
  - HYPOTENSION [None]
  - DIZZINESS [None]
  - TINNITUS [None]
